FAERS Safety Report 18940794 (Version 1)
Quarter: 2021Q1

REPORT INFORMATION
  Report Type: Report from Study
  Country: CA (occurrence: CA)
  Receive Date: 20210225
  Receipt Date: 20210225
  Transmission Date: 20210420
  Serious: Yes (Hospitalization)
  Sender: FDA-Public Use
  Company Number: CA-ASTRAZENECA-2020SF42231

PATIENT
  Age: 573 Month
  Sex: Female

DRUGS (6)
  1. FASENRA [Suspect]
     Active Substance: BENRALIZUMAB
     Indication: ASTHMA
     Dosage: 30.0MG UNKNOWN
     Route: 058
     Dates: start: 20181002
  2. VENTOLIN [Concomitant]
     Active Substance: ALBUTEROL SULFATE
  3. TUDORZA [Concomitant]
     Active Substance: ACLIDINIUM BROMIDE
  4. ALVESCO [Concomitant]
     Active Substance: CICLESONIDE
  5. ZENHALE [Concomitant]
     Active Substance: FORMOTEROL FUMARATE\MOMETASONE FUROATE
  6. SINGULAIR [Concomitant]
     Active Substance: MONTELUKAST SODIUM

REACTIONS (4)
  - Asthma [Unknown]
  - Pneumonia [Unknown]
  - Drug ineffective [Unknown]
  - Wound [Unknown]

NARRATIVE: CASE EVENT DATE: 202009
